FAERS Safety Report 12879459 (Version 2)
Quarter: 2016Q4

REPORT INFORMATION
  Report Type: Report from Study
  Country: JP (occurrence: JP)
  Receive Date: 20161025
  Receipt Date: 20161102
  Transmission Date: 20170207
  Serious: Yes (Life-Threatening, Hospitalization)
  Sender: FDA-Public Use
  Company Number: JP-ROCHE-1845010

PATIENT

DRUGS (3)
  1. BEVACIZUMAB [Suspect]
     Active Substance: BEVACIZUMAB
     Indication: NON-SMALL CELL LUNG CANCER
     Dosage: 4CYCLES
     Route: 041
     Dates: start: 20140918, end: 20141211
  2. CARBOPLATIN. [Suspect]
     Active Substance: CARBOPLATIN
     Indication: NON-SMALL CELL LUNG CANCER
     Dosage: AUC6?4CYCLES
     Route: 041
     Dates: start: 20140918, end: 20141211
  3. PEMETREXED SODIUM HYDRATE [Suspect]
     Active Substance: PEMETREXED
     Indication: NON-SMALL CELL LUNG CANCER
     Dosage: 4CYCLES
     Route: 041
     Dates: start: 20140918, end: 20141211

REACTIONS (3)
  - Gastrointestinal perforation [Recovered/Resolved]
  - Loss of consciousness [Recovering/Resolving]
  - Decreased appetite [Recovering/Resolving]

NARRATIVE: CASE EVENT DATE: 20141125
